FAERS Safety Report 7654323-3 (Version None)
Quarter: 2011Q3

REPORT INFORMATION
  Report Type: 
  Country: None (occurrence: None)
  Receive Date: 20110803
  Receipt Date: 20110722
  Transmission Date: 20111222
  Serious: Yes (Hospitalization)
  Sender: FDA-Public Use
  Company Number: US-JNJFOC-20110611779

PATIENT
  Sex: Female
  Weight: 55.11 kg

DRUGS (3)
  1. PENTASA [Concomitant]
     Indication: CROHN'S DISEASE
     Route: 048
  2. LOMOTIL [Concomitant]
     Indication: CROHN'S DISEASE
     Route: 048
  3. REMICADE [Suspect]
     Indication: CROHN'S DISEASE
     Route: 042
     Dates: start: 20050401, end: 20100824

REACTIONS (5)
  - JOINT SWELLING [None]
  - ACUTE FEBRILE NEUTROPHILIC DERMATOSIS [None]
  - CROHN'S DISEASE [None]
  - WEIGHT INCREASED [None]
  - HAEMOLYSIS [None]
